FAERS Safety Report 14246879 (Version 1)
Quarter: 2017Q4

REPORT INFORMATION
  Report Type: Spontaneous
  Country: US (occurrence: US)
  Receive Date: 20171204
  Receipt Date: 20171204
  Transmission Date: 20180321
  Serious: No
  Sender: FDA-Public Use
  Company Number: US-PFIZER INC-2017515206

PATIENT
  Age: 63 Year
  Sex: Female

DRUGS (1)
  1. SUTENT [Suspect]
     Active Substance: SUNITINIB MALATE
     Indication: RENAL CELL CARCINOMA
     Dosage: 37.5 MG, DAILY (CONTINUOUSLY)
     Dates: start: 20171108

REACTIONS (6)
  - Oral mucosal blistering [Unknown]
  - Stomatitis [Unknown]
  - Glossitis [Unknown]
  - Nausea [Unknown]
  - Diarrhoea [Unknown]
  - Oral pain [Unknown]

NARRATIVE: CASE EVENT DATE: 201711
